FAERS Safety Report 6000783-3 (Version None)
Quarter: 2008Q4

REPORT INFORMATION
  Report Type: 
  Country: None (occurrence: None)
  Receive Date: 20081215
  Receipt Date: 20070620
  Transmission Date: 20090506
  Serious: Yes (Life-Threatening, Hospitalization, Other)
  Sender: FDA-Public Use
  Company Number: ES-BRISTOL-MYERS SQUIBB COMPANY-13445309

PATIENT
  Age: 60 Year
  Sex: Female

DRUGS (5)
  1. IRBESARTAN [Suspect]
     Indication: ACUTE CORONARY SYNDROME
     Route: 048
     Dates: start: 20060714, end: 20060717
  2. PLACEBO [Suspect]
     Indication: ACUTE CORONARY SYNDROME
     Route: 048
     Dates: start: 20060714, end: 20060717
  3. ATENOLOL [Concomitant]
     Dates: start: 20060712
  4. SIMVASTATIN [Concomitant]
     Dates: start: 20060712
  5. CLOPIDOGREL BISULFATE [Concomitant]
     Dates: start: 20060713

REACTIONS (2)
  - CARDIOGENIC SHOCK [None]
  - THROMBOSIS IN DEVICE [None]
